FAERS Safety Report 13934748 (Version 1)
Quarter: 2017Q3

REPORT INFORMATION
  Report Type: Spontaneous
  Country: DE (occurrence: DE)
  Receive Date: 20170905
  Receipt Date: 20170905
  Transmission Date: 20171127
  Serious: Yes (Congenital Anomaly, Other)
  Sender: FDA-Public Use
  Company Number: DE-TORRENT-00007025

PATIENT
  Sex: Male
  Weight: 3 kg

DRUGS (2)
  1. ELONTRIL [Suspect]
     Active Substance: BUPROPION HYDROCHLORIDE
  2. QUETIAPINE. [Suspect]
     Active Substance: QUETIAPINE

REACTIONS (5)
  - Hydrocephalus [Not Recovered/Not Resolved]
  - Foetal exposure during pregnancy [Unknown]
  - Cerebral haemorrhage [Not Recovered/Not Resolved]
  - Vein of Galen aneurysmal malformation [Not Recovered/Not Resolved]
  - Epilepsy [Not Recovered/Not Resolved]
